FAERS Safety Report 7443871-7 (Version None)
Quarter: 2011Q2

REPORT INFORMATION
  Report Type: 
  Country: None (occurrence: None)
  Receive Date: 20110428
  Receipt Date: 20110325
  Transmission Date: 20111010
  Serious: Yes (Other)
  Sender: FDA-Public Use
  Company Number: US-BAYER-201038109NA

PATIENT
  Sex: Female
  Weight: 113.38 kg

DRUGS (13)
  1. YASMIN [Suspect]
     Indication: CONTRACEPTION
  2. DILTIAZEM [Concomitant]
     Indication: HYPERTENSION
  3. LISINOPRIL [Concomitant]
  4. NEXIUM [Concomitant]
  5. CITALOPRAM [Concomitant]
     Indication: DEPRESSION
  6. YASMIN [Suspect]
     Indication: ACNE
     Dosage: UNK UNK, QD
     Dates: start: 20010101, end: 20030101
  7. LEVOTHYROXINE SODIUM [Concomitant]
     Indication: HYPOTHYROIDISM
  8. YAZ [Suspect]
     Indication: ACNE
  9. ADVIL [Concomitant]
     Indication: PAIN
  10. TRIAMTERENE [Concomitant]
     Indication: DIURETIC THERAPY
  11. DROSPIRENONE AND ETHINYL ESTRADIOL [Suspect]
     Indication: ACNE
  12. HYOSCYAMINE [Concomitant]
  13. PROMETHAZINE [Concomitant]

REACTIONS (8)
  - BACK PAIN [None]
  - GALLBLADDER DISORDER [None]
  - NAUSEA [None]
  - DIARRHOEA [None]
  - BILIARY COLIC [None]
  - DYSPEPSIA [None]
  - CHOLECYSTITIS [None]
  - VOMITING [None]
